FAERS Safety Report 4634103-3 (Version None)
Quarter: 2005Q2

REPORT INFORMATION
  Report Type: 
  Country: None (occurrence: None)
  Receive Date: 20050413
  Receipt Date: 20050412
  Transmission Date: 20051028
  Serious: Yes (Other)
  Sender: FDA-Public Use
  Company Number: US-GLAXOSMITHKLINE-A0553784A

PATIENT
  Age: 10 Year
  Sex: Female

DRUGS (5)
  1. FLOVENT [Suspect]
     Indication: ASTHMA
     Dosage: 2PUFF TWICE PER DAY
     Route: 055
     Dates: start: 20030101
  2. FLONASE [Concomitant]
  3. SINGULAIR [Concomitant]
  4. LORATADINE [Concomitant]
  5. SEREVENT [Concomitant]

REACTIONS (1)
  - ADRENAL INSUFFICIENCY [None]
